FAERS Safety Report 7034307-9 (Version None)
Quarter: 2010Q4

REPORT INFORMATION
  Report Type: 
  Country: None (occurrence: None)
  Receive Date: 20101008
  Receipt Date: 20100927
  Transmission Date: 20110411
  Serious: Yes (Hospitalization)
  Sender: FDA-Public Use
  Company Number: FR-ELI_LILLY_AND_COMPANY-FR201009007511

PATIENT
  Age: 40 Year
  Sex: Male

DRUGS (5)
  1. ZYPREXA [Suspect]
     Indication: PSYCHOTIC DISORDER
     Dosage: 10 MG, DAILY (1/D)
     Route: 048
  2. EFFEXOR [Concomitant]
     Indication: PSYCHOTIC DISORDER
     Route: 048
  3. TEMESTA [Concomitant]
     Indication: PSYCHOTIC DISORDER
  4. AOTAL [Concomitant]
     Indication: ALCOHOL WITHDRAWAL SYNDROME
     Route: 048
  5. REVIA [Concomitant]
     Indication: ALCOHOL WITHDRAWAL SYNDROME
     Route: 048

REACTIONS (2)
  - MALIGNANT HYPERTENSION [None]
  - RETINAL HAEMORRHAGE [None]
